FAERS Safety Report 6853758-6 (Version None)
Quarter: 2010Q3

REPORT INFORMATION
  Report Type: 
  Country: None (occurrence: None)
  Receive Date: 20100717
  Receipt Date: 20071213
  Transmission Date: 20110219
  Serious: No
  Sender: FDA-Public Use
  Company Number: US-PFIZER INC-2007106767

PATIENT
  Sex: Female
  Weight: 58.1 kg

DRUGS (9)
  1. CHANTIX [Suspect]
     Indication: SMOKING CESSATION THERAPY
     Dates: start: 20070401, end: 20070401
  2. PROMETHAZINE [Concomitant]
  3. TOPROL-XL [Concomitant]
  4. LISINOPRIL [Concomitant]
  5. ACETYLSALICYLIC ACID [Concomitant]
  6. TRICOR [Concomitant]
  7. CRESTOR [Concomitant]
  8. OMACOR [Concomitant]
  9. PRILOSEC [Concomitant]

REACTIONS (2)
  - ABDOMINAL DISCOMFORT [None]
  - MALAISE [None]
